FAERS Safety Report 18074759 (Version 1)
Quarter: 2020Q3

REPORT INFORMATION
  Report Type: Spontaneous
  Country: US (occurrence: US)
  Receive Date: 20200727
  Receipt Date: 20200727
  Transmission Date: 20201103
  Serious: No
  Sender: FDA-Public Use
  Company Number: US-ABBVIE-19K-163-2866090-00

PATIENT
  Sex: Female

DRUGS (3)
  1. SYNTHROID [Suspect]
     Active Substance: LEVOTHYROXINE SODIUM
     Indication: PRODUCT USED FOR UNKNOWN INDICATION
     Route: 048
  2. ARMOUR THYROID [Suspect]
     Active Substance: THYROID, PORCINE
     Dosage: FRIDAY AND SATURDAY
     Route: 048
     Dates: start: 2000
  3. ARMOUR THYROID [Suspect]
     Active Substance: THYROID, PORCINE
     Indication: AUTOIMMUNE THYROIDITIS
     Dosage: SUNDAY, MONDAY, TUESDAY, WEDNESDAY
     Route: 048
     Dates: start: 2000

REACTIONS (4)
  - Feeling abnormal [Unknown]
  - Heart rate increased [Recovered/Resolved]
  - Immune system disorder [Unknown]
  - Alopecia [Recovered/Resolved]
